FAERS Safety Report 8086986-5 (Version None)
Quarter: 2012Q1

REPORT INFORMATION
  Report Type: 
  Country: None (occurrence: None)
  Receive Date: 20120128
  Receipt Date: 20110603
  Transmission Date: 20120608
  Serious: No
  Sender: FDA-Public Use
  Company Number: US-ABBOTT-11P-163-0727477-00

PATIENT
  Sex: Male

DRUGS (7)
  1. ABILIFY [Concomitant]
     Indication: DEPRESSION
     Dosage: 30 MG DAILY
  2. MARINOL [Concomitant]
     Indication: DEPRESSION
  3. HUMIRA [Suspect]
     Indication: CROHN'S DISEASE
     Dosage: APPROXIMATELY ONE YEAR
     Route: 058
     Dates: start: 20100101, end: 20110501
  4. MARINOL [Concomitant]
     Indication: ANXIETY
  5. CYMBALTA [Concomitant]
     Indication: DEPRESSION
     Dosage: 30 MG DAILY
  6. KLONOPIN [Concomitant]
     Indication: ANXIETY
     Dosage: 3 MG DAILY
  7. MARINOL [Concomitant]
     Indication: CROHN'S DISEASE
     Dosage: 50 MG DAILY

REACTIONS (3)
  - PSORIASIS [None]
  - SKIN LESION [None]
  - INJECTION SITE ULCER [None]
